FAERS Safety Report 4545822-1 (Version None)
Quarter: 2005Q1

REPORT INFORMATION
  Report Type: 
  Country: None (occurrence: None)
  Receive Date: 20050105
  Receipt Date: 20050105
  Transmission Date: 20050727
  Serious: Yes (Hospitalization)
  Sender: FDA-Public Use
  Company Number: None

PATIENT
  Age: 74 Year
  Sex: Male
  Weight: 67.586 kg

DRUGS (1)
  1. RIFAMPIN [Suspect]
     Indication: PULMONARY TUBERCULOSIS
     Dosage: 600 MG PO QD
     Route: 048
     Dates: start: 20041223, end: 20041206

REACTIONS (3)
  - ASTHENIA [None]
  - DECREASED APPETITE [None]
  - NAUSEA [None]
